FAERS Safety Report 8887285 (Version 4)
Quarter: 2013Q2

REPORT INFORMATION
  Report Type: Report from Study
  Country: CA (occurrence: CA)
  Receive Date: 20121105
  Receipt Date: 20130416
  Transmission Date: 20140414
  Serious: Yes (Death, Hospitalization)
  Sender: FDA-Public Use
  Company Number: CA-TEVA-366153USA

PATIENT
  Age: 54 Year
  Sex: Female
  Weight: 56.8 kg

DRUGS (8)
  1. TREANDA [Suspect]
     Indication: NON-HODGKIN^S LYMPHOMA UNSPECIFIED HISTOLOGY INDOLENT
     Route: 042
     Dates: start: 20120502
  2. TYLENOL NO.3 [Concomitant]
     Indication: PAIN
     Route: 048
     Dates: start: 201203
  3. HYDROCHLOROTHIAZIDE [Concomitant]
     Indication: HYPERTENSION
     Dosage: 25 MILLIGRAM DAILY;
     Route: 048
     Dates: start: 201110
  4. AMLODIPINE [Concomitant]
     Indication: HYPERTENSION
     Dosage: 10 MILLIGRAM DAILY;
     Route: 048
     Dates: start: 201110
  5. ALLOPURINOL [Concomitant]
     Indication: PROPHYLAXIS
     Dosage: 300 MILLIGRAM DAILY;
     Route: 048
     Dates: start: 20120501, end: 20120529
  6. ULTRACET [Concomitant]
     Indication: HEADACHE
     Dosage: 37.5/325 MG 3 TIMES DAILY AS NEEDED
     Route: 048
     Dates: start: 20120427
  7. REACTINE [Concomitant]
     Indication: ALLERGY TO ARTHROPOD STING
     Dosage: 5-10 MG AS NEEDED
     Route: 048
     Dates: start: 20120528
  8. MAXERAN [Concomitant]
     Indication: NAUSEA
     Dosage: 10 MG AS NEEDED
     Route: 048
     Dates: start: 20120502

REACTIONS (1)
  - Abdominal pain [Fatal]
